FAERS Safety Report 16526952 (Version 1)
Quarter: 2019Q3

REPORT INFORMATION
  Report Type: Spontaneous
  Country: NL (occurrence: NL)
  Receive Date: 20190703
  Receipt Date: 20190703
  Transmission Date: 20191004
  Serious: Yes (Other)
  Sender: FDA-Public Use
  Company Number: NL-MYLANLABS-2019M1061853

PATIENT
  Age: 49 Year
  Sex: Female
  Weight: 93 kg

DRUGS (3)
  1. SYMBICORT [Concomitant]
     Active Substance: BUDESONIDE\FORMOTEROL FUMARATE DIHYDRATE
     Dosage: UNK
  2. SPIRIVA [Concomitant]
     Active Substance: TIOTROPIUM BROMIDE MONOHYDRATE
     Dosage: UNK
  3. LOSARTAN. [Suspect]
     Active Substance: LOSARTAN
     Indication: HYPERTENSION
     Dosage: !X P DAG !
     Route: 048
     Dates: start: 20181210, end: 20190211

REACTIONS (8)
  - Blood pressure decreased [Recovered/Resolved]
  - Pruritus [Recovered/Resolved]
  - Angina pectoris [Recovered/Resolved]
  - Palpitations [Recovered/Resolved]
  - Presyncope [Recovered/Resolved]
  - Muscle spasms [Recovered/Resolved]
  - Atrial fibrillation [Recovered/Resolved]
  - Cough [Recovered/Resolved]

NARRATIVE: CASE EVENT DATE: 20190208
